FAERS Safety Report 13273387 (Version 1)
Quarter: 2017Q1

REPORT INFORMATION
  Report Type: Report from Study
  Country: BR (occurrence: BR)
  Receive Date: 20170227
  Receipt Date: 20170227
  Transmission Date: 20170428
  Serious: Yes (Hospitalization)
  Sender: FDA-Public Use
  Company Number: PHHY2016BR171065

PATIENT
  Sex: Male
  Weight: 19 kg

DRUGS (1)
  1. EXJADE [Suspect]
     Active Substance: DEFERASIROX
     Indication: SICKLE CELL ANAEMIA
     Dosage: 375 MG, QD (2 TABLETS OF EXJADE, 1 OF 250MG AND 1 OF 125MG)
     Route: 048
     Dates: start: 201508

REACTIONS (3)
  - Abdominal pain [Recovering/Resolving]
  - Sickle cell anaemia with crisis [Unknown]
  - Pneumonia [Recovering/Resolving]
